FAERS Safety Report 12177197 (Version 1)
Quarter: 2016Q1

REPORT INFORMATION
  Report Type: Spontaneous
  Country: RS (occurrence: RS)
  Receive Date: 20160314
  Receipt Date: 20160314
  Transmission Date: 20160526
  Serious: Yes (Other)
  Sender: FDA-Public Use
  Company Number: PHHY2016RS033691

PATIENT
  Age: 55 Year
  Sex: Female

DRUGS (4)
  1. LAPATINIB [Suspect]
     Active Substance: LAPATINIB
     Dosage: 750 MG, AFTER 32 WEEKS
     Route: 048
  2. LAPATINIB [Suspect]
     Active Substance: LAPATINIB
     Dosage: 1000 MG, AFTER 14 WEEKS
     Route: 048
  3. LAPATINIB [Suspect]
     Active Substance: LAPATINIB
     Indication: BREAST CANCER
     Dosage: 1250 MG, UNK
     Route: 048
  4. CAPECITABINE. [Suspect]
     Active Substance: CAPECITABINE
     Indication: BREAST CANCER
     Dosage: 2000 MG/M2, UNK
     Route: 048

REACTIONS (5)
  - Nail disorder [Recovered/Resolved]
  - Fatigue [Recovered/Resolved]
  - Diarrhoea [Recovered/Resolved]
  - Neuropathy peripheral [Recovered/Resolved]
  - Pyrexia [Recovered/Resolved]
